FAERS Safety Report 14528668 (Version 4)
Quarter: 2019Q1

REPORT INFORMATION
  Report Type: Report from Study
  Country: US (occurrence: US)
  Receive Date: 20180214
  Receipt Date: 20190206
  Transmission Date: 20190417
  Serious: No
  Sender: FDA-Public Use
  Company Number: US-SHIRE-US201805011

PATIENT
  Sex: Female
  Weight: 53 kg

DRUGS (6)
  1. XIIDRA [Suspect]
     Active Substance: LIFITEGRAST
     Dosage: 5 % SOLUTION1 GTT, 2X/DAY:BID
     Route: 047
  2. XIIDRA [Suspect]
     Active Substance: LIFITEGRAST
     Indication: DRY EYE
     Dosage: 1 GTT, 2X/DAY:BID 5 % SOLUTION
     Route: 047
  3. MULTIVITAMIN [Concomitant]
     Active Substance: VITAMINS
     Indication: VITAMIN SUPPLEMENTATION
  4. AMLODIPINE [Concomitant]
     Active Substance: AMLODIPINE BESYLATE
     Indication: HYPERTENSION
  5. PROPRANOLOL [Concomitant]
     Active Substance: PROPRANOLOL HYDROCHLORIDE
     Indication: HYPERTENSION
  6. FISH OIL [Concomitant]
     Active Substance: FISH OIL
     Indication: DRY EYE

REACTIONS (6)
  - Instillation site reaction [Unknown]
  - Vision blurred [Unknown]
  - Instillation site pain [Unknown]
  - Dry eye [Unknown]
  - Visual acuity reduced transiently [Unknown]
  - Instillation site irritation [Unknown]
